FAERS Safety Report 15540668 (Version 1)
Quarter: 2018Q4

REPORT INFORMATION
  Report Type: Spontaneous
  Country: US (occurrence: US)
  Receive Date: 20181023
  Receipt Date: 20181023
  Transmission Date: 20190205
  Serious: No
  Sender: FDA-Public Use
  Company Number: US-GLENMARK PHARMACEUTICALS-2018GMK037196

PATIENT

DRUGS (1)
  1. CLOTRIMAZOLE/BETAMETHASONE DIPROPIONATE CREAM USP [Suspect]
     Active Substance: BETAMETHASONE DIPROPIONATE\CLOTRIMAZOLE
     Indication: DERMATITIS DIAPER
     Dosage: UNK, OD
     Route: 061
     Dates: start: 20180825, end: 20180826

REACTIONS (3)
  - Product use in unapproved indication [Unknown]
  - Application site pain [Recovered/Resolved]
  - Crying [Recovered/Resolved]

NARRATIVE: CASE EVENT DATE: 20180825
